FAERS Safety Report 5868698-9 (Version None)
Quarter: 2008Q3

REPORT INFORMATION
  Report Type: 
  Country: None (occurrence: None)
  Receive Date: 20080903
  Receipt Date: 20080826
  Transmission Date: 20090109
  Serious: Yes (Hospitalization, Other)
  Sender: FDA-Public Use
  Company Number: PHEH2006US02051

PATIENT

DRUGS (14)
  1. ZOMETA [Suspect]
     Indication: METASTASES TO BONE
     Dosage: 4 MG, MONTHLY
     Dates: start: 20031229, end: 20051022
  2. FEMARA [Concomitant]
     Indication: BREAST CANCER
     Dosage: UNK
  3. ZOLOFT [Concomitant]
     Dosage: 50 MG, BID
  4. AMBIEN [Concomitant]
  5. PROTONIX [Concomitant]
     Dosage: 40 MG, QD
  6. FIORICET [Concomitant]
  7. CODEINE SUL TAB [Concomitant]
  8. ZANTAC [Concomitant]
  9. XANAX [Concomitant]
  10. RADIATION THERAPY [Concomitant]
     Indication: METASTASES TO SPINE
  11. CHEMOTHERAPEUTICS NOS [Concomitant]
  12. CLARITIN-D [Concomitant]
     Dosage: UNK, UNK
  13. ROBAXIN [Concomitant]
     Dosage: 750 MG, UNK
  14. PREMPRO [Concomitant]
     Dosage: UNK, UNK

REACTIONS (38)
  - ABDOMINAL DISCOMFORT [None]
  - ABDOMINAL PAIN UPPER [None]
  - ABSCESS JAW [None]
  - ARTHRITIS [None]
  - ASTHENIA [None]
  - BONE DISORDER [None]
  - CYSTOCELE [None]
  - DENTAL CARE [None]
  - DIARRHOEA [None]
  - DIZZINESS [None]
  - ENTEROCELE [None]
  - FACIAL PAIN [None]
  - FALL [None]
  - FEBRILE NEUTROPENIA [None]
  - GASTROENTERITIS CLOSTRIDIAL [None]
  - HEAD INJURY [None]
  - HYSTERECTOMY [None]
  - LOCAL SWELLING [None]
  - LOOSE TOOTH [None]
  - MALAISE [None]
  - METASTASES TO BONE [None]
  - METASTASES TO LIVER [None]
  - NEOPLASM [None]
  - ORAL INFECTION [None]
  - ORAL PAIN [None]
  - OSTEONECROSIS [None]
  - OSTEOSCLEROSIS [None]
  - PROLAPSE REPAIR [None]
  - RECTOCELE [None]
  - SALPINGO-OOPHORECTOMY BILATERAL [None]
  - SWELLING FACE [None]
  - SYNCOPE [None]
  - TEMPOROMANDIBULAR JOINT SYNDROME [None]
  - TOOTH EXTRACTION [None]
  - TOOTH LOSS [None]
  - TRISMUS [None]
  - UTERINE PROLAPSE [None]
  - WEIGHT INCREASED [None]
